FAERS Safety Report 4666606-X (Version None)
Quarter: 2005Q2

REPORT INFORMATION
  Report Type: 
  Country: None (occurrence: None)
  Receive Date: 20050519
  Receipt Date: 20040420
  Transmission Date: 20051028
  Serious: Yes (Disabling, Other)
  Sender: FDA-Public Use
  Company Number: PHBS2004IT05392

PATIENT
  Sex: Female

DRUGS (5)
  1. ZOMETA [Suspect]
     Indication: BREAST CANCER METASTATIC
     Dosage: 4 MG, QMO
     Route: 042
     Dates: start: 20020801, end: 20031203
  2. TAMOXIFEN [Concomitant]
     Dosage: 20 MG/D
     Route: 065
  3. ANTI-ESTROGENS [Concomitant]
  4. TRIPTORELIN [Concomitant]
     Dosage: 3.75 MG
  5. AREDIA [Suspect]
     Indication: BREAST CANCER METASTATIC
     Dosage: 90 MG
     Route: 042
     Dates: start: 19990406, end: 20020728

REACTIONS (5)
  - ASEPTIC NECROSIS BONE [None]
  - BONE DISORDER [None]
  - OSTEOLYSIS [None]
  - PERIODONTITIS [None]
  - TOOTH DISORDER [None]
